FAERS Safety Report 8303937-6 (Version None)
Quarter: 2012Q2

REPORT INFORMATION
  Report Type: 
  Country: None (occurrence: None)
  Receive Date: 20120420
  Receipt Date: 20120420
  Transmission Date: 20120825
  Serious: No
  Sender: FDA-Public Use
  Company Number: None

PATIENT
  Age: 54 Year
  Sex: Male
  Weight: 96 kg

DRUGS (5)
  1. PROTONIX [Concomitant]
  2. LACTULOSE [Concomitant]
  3. LEVETIRACETAM [Concomitant]
  4. FORTAZ [Concomitant]
  5. LACOSAMIDE [Suspect]
     Indication: CONVULSION
     Dosage: 200 MG BID PO
     Route: 048
     Dates: start: 20120116, end: 20120121

REACTIONS (1)
  - HYPERNATRAEMIA [None]
